FAERS Safety Report 12397350 (Version 2)
Quarter: 2016Q2

REPORT INFORMATION
  Report Type: Spontaneous
  Country: US (occurrence: US)
  Receive Date: 20160524
  Receipt Date: 20160606
  Transmission Date: 20160815
  Serious: No
  Sender: FDA-Public Use
  Company Number: US-PFIZER INC-2016269290

PATIENT
  Age: 51 Year
  Sex: Male
  Weight: 71.2 kg

DRUGS (5)
  1. LYRICA [Suspect]
     Active Substance: PREGABALIN
     Indication: NEUROPATHY PERIPHERAL
     Dosage: 75 MG, 1X/DAY (BEFORE BEDTIME)
     Route: 048
     Dates: start: 20160501
  2. LYRICA [Suspect]
     Active Substance: PREGABALIN
     Dosage: 75 MG, (ONCE IN THE MORNING ONCE AT NIGHT)
     Route: 048
     Dates: start: 20160512
  3. FINASTERIDE. [Concomitant]
     Active Substance: FINASTERIDE
     Dosage: 1 MG, UNK
  4. PANTOPRAZOLE SODIUM. [Concomitant]
     Active Substance: PANTOPRAZOLE SODIUM
     Dosage: 40 MG, ONCE DAILY
  5. NAPROXEN. [Concomitant]
     Active Substance: NAPROXEN
     Indication: PAIN
     Dosage: 440 MG, UNK

REACTIONS (7)
  - Glossodynia [Not Recovered/Not Resolved]
  - Oral discomfort [Not Recovered/Not Resolved]
  - Condition aggravated [Not Recovered/Not Resolved]
  - Dizziness [Unknown]
  - Throat irritation [Unknown]
  - Headache [Unknown]
  - Burning sensation [Not Recovered/Not Resolved]
